FAERS Safety Report 16240352 (Version 1)
Quarter: 2019Q2

REPORT INFORMATION
  Report Type: Spontaneous
  Country: SE (occurrence: SE)
  Receive Date: 20190425
  Receipt Date: 20190425
  Transmission Date: 20190711
  Serious: Yes (Other)
  Sender: FDA-Public Use
  Company Number: SE-EX USA HOLDINGS-EXHL20192228

PATIENT
  Age: 27 Year
  Sex: Female

DRUGS (1)
  1. DIZMINE 28 [Suspect]
     Active Substance: DROSPIRENONE\ETHINYL ESTRADIOL
     Indication: PRODUCT USED FOR UNKNOWN INDICATION
     Dosage: UNKNOWN
     Route: 048
     Dates: end: 20190209

REACTIONS (3)
  - Adnexa uteri pain [Unknown]
  - Ovarian cyst [Unknown]
  - Venous thrombosis [Unknown]

NARRATIVE: CASE EVENT DATE: 20190208
